FAERS Safety Report 11700388 (Version 1)
Quarter: 2015Q4

REPORT INFORMATION
  Report Type: Spontaneous
  Country: US (occurrence: None)
  Receive Date: 20151104
  Receipt Date: 20151104
  Transmission Date: 20160304
  Serious: Yes (Disabling)
  Sender: FDA-Public Use
  Company Number: None

PATIENT
  Age: 30 Year
  Sex: Female
  Weight: 61.24 kg

DRUGS (5)
  1. LAMOTRIGINE 100MG CADISTA PHARM [Suspect]
     Active Substance: LAMOTRIGINE
     Indication: DEPRESSION
     Dosage: 1/2 PILL
     Route: 048
     Dates: start: 20150101, end: 20150304
  2. LAMOTRIGINE 100MG CADISTA PHARM [Suspect]
     Active Substance: LAMOTRIGINE
     Indication: OFF LABEL USE
     Dosage: 1/2 PILL
     Route: 048
     Dates: start: 20150101, end: 20150304
  3. MULTIVITAMIN [Concomitant]
     Active Substance: VITAMINS
  4. VITAMIN D3 [Concomitant]
     Active Substance: CHOLECALCIFEROL
  5. FISH OIL [Concomitant]
     Active Substance: FISH OIL

REACTIONS (10)
  - Pain [None]
  - Alcohol use [None]
  - Paraesthesia [None]
  - Feeling abnormal [None]
  - Drug interaction [None]
  - Burning sensation [None]
  - Therapy cessation [None]
  - Off label use [None]
  - Headache [None]
  - Discomfort [None]

NARRATIVE: CASE EVENT DATE: 20150304
